FAERS Safety Report 7310712-8 (Version None)
Quarter: 2011Q1

REPORT INFORMATION
  Report Type: 
  Country: None (occurrence: None)
  Receive Date: 20110224
  Receipt Date: 20110222
  Transmission Date: 20110831
  Serious: Yes (Hospitalization)
  Sender: FDA-Public Use
  Company Number: IT-SANOFI-AVENTIS-2011SA010995

PATIENT
  Age: 72 Year
  Sex: Male

DRUGS (5)
  1. LASIX [Suspect]
     Route: 048
     Dates: start: 20101115, end: 20110121
  2. FOLINA [Concomitant]
     Route: 065
  3. SANDOSTATIN [Suspect]
     Dosage: DOSE:1 UNIT(S)
     Route: 058
     Dates: start: 20101115, end: 20110121
  4. ALDACTONE [Concomitant]
     Route: 065
  5. PANTORC [Suspect]
     Route: 048
     Dates: start: 20101115, end: 20110121

REACTIONS (10)
  - DYSPEPSIA [None]
  - GASTRITIS [None]
  - VOMITING [None]
  - COLITIS [None]
  - HEPATOBILIARY DISEASE [None]
  - NAUSEA [None]
  - DIARRHOEA [None]
  - HYPERGLYCAEMIA [None]
  - GASTROINTESTINAL DISORDER [None]
  - ASTHENIA [None]
